FAERS Safety Report 4429402-4 (Version None)
Quarter: 2004Q3

REPORT INFORMATION
  Report Type: 
  Country: None (occurrence: None)
  Receive Date: 20040816
  Receipt Date: 20040803
  Transmission Date: 20050211
  Serious: Yes (Hospitalization, Other)
  Sender: FDA-Public Use
  Company Number: 2004043265

PATIENT
  Age: 61 Year
  Sex: Female

DRUGS (9)
  1. LIPITOR [Suspect]
     Indication: HYPERLIPIDAEMIA
     Dosage: 10 MG (1 IN 1 D), ORAL
     Route: 048
     Dates: start: 20010316, end: 20040621
  2. ZOLPIDEM TARTRATE [Suspect]
     Indication: ILL-DEFINED DISORDER
     Dosage: 10 MG (1 IN 1 D), ORAL
     Route: 048
  3. FLUVOXAMINE [Concomitant]
  4. ALPRAZOLAM [Concomitant]
  5. VEGETAMIN (CHLORPROMAZINE HYDROCHLORIDE, PHENOBARBITAL, PROMETHAZINE H [Concomitant]
  6. ESTAZOLAM [Concomitant]
  7. METFORMIN HCL [Concomitant]
  8. CILOSTAZOL [Concomitant]
  9. RABEPRAZOLE SODIUM [Concomitant]

REACTIONS (23)
  - ALCOHOLISM [None]
  - ANTINUCLEAR ANTIBODY POSITIVE [None]
  - ASTHENIA [None]
  - BLOOD CHLORIDE DECREASED [None]
  - BLOOD CHOLESTEROL INCREASED [None]
  - BLOOD GLUCOSE INCREASED [None]
  - BLOOD PRESSURE INCREASED [None]
  - BLOOD TRIGLYCERIDES INCREASED [None]
  - COORDINATION ABNORMAL [None]
  - DIFFICULTY IN WALKING [None]
  - DYSSTASIA [None]
  - GAIT DISTURBANCE [None]
  - GLYCOSYLATED HAEMOGLOBIN INCREASED [None]
  - HAEMATOCRIT INCREASED [None]
  - HEPATIC CYST [None]
  - HEPATOMEGALY [None]
  - HYPOAESTHESIA [None]
  - LIVER DISORDER [None]
  - MEDICATION ERROR [None]
  - MOVEMENT DISORDER [None]
  - OXYGEN SATURATION DECREASED [None]
  - PLATELET COUNT INCREASED [None]
  - RHABDOMYOLYSIS [None]
